FAERS Safety Report 25041511 (Version 1)
Quarter: 2025Q1

REPORT INFORMATION
  Report Type: Spontaneous
  Country: PL (occurrence: PL)
  Receive Date: 20250305
  Receipt Date: 20250305
  Transmission Date: 20250409
  Serious: Yes (Hospitalization, Disabling, Other)
  Sender: Haleon PLC
  Company Number: PL-GLAXOSMITHKLINE-PLCH2021GSK086459

PATIENT
  Age: 83 Year
  Sex: Female
  Weight: 91 kg

DRUGS (69)
  1. ACETAMINOPHEN [Suspect]
     Active Substance: ACETAMINOPHEN
     Indication: Product used for unknown indication
     Dosage: 40 MILLIGRAM DAILY;
  2. QUETIAPINE [Concomitant]
     Active Substance: QUETIAPINE
     Indication: Product used for unknown indication
     Dosage: 25 MG, QD/0-0-1
  3. RUFLOXACIN [Concomitant]
     Active Substance: RUFLOXACIN
     Indication: Nasopharyngitis
     Dosage: 1 DOSAGE FORM, BID
     Route: 048
  4. METFORMIN [Interacting]
     Active Substance: METFORMIN HYDROCHLORIDE
     Indication: Type 2 diabetes mellitus
  5. ALLOPURINOL [Interacting]
     Active Substance: ALLOPURINOL
     Indication: Product used for unknown indication
     Route: 048
  6. AMLODIPINE BESYLATE [Concomitant]
     Active Substance: AMLODIPINE BESYLATE
     Indication: Hypertension
     Dosage: 1 DF QD
     Route: 048
  7. METOCLOPRAMIDE [Interacting]
     Active Substance: METOCLOPRAMIDE
     Indication: Constipation
  8. DEXTROSE [Concomitant]
     Active Substance: DEXTROSE MONOHYDRATE
     Indication: Product used for unknown indication
  9. LEVOTHYROXINE [Interacting]
     Active Substance: LEVOTHYROXINE
     Indication: Product used for unknown indication
     Dosage: 100 UG, QD/1-0-0
  10. ATORVASTATIN [Interacting]
     Active Substance: ATORVASTATIN
     Indication: Product used for unknown indication
     Dosage: 20 MG, QD/0-0-1
  11. TORSEMIDE [Suspect]
     Active Substance: TORSEMIDE
     Indication: Product used for unknown indication
     Dosage: 5 MG, QD/1-0-0
     Route: 048
  12. BETAHISTINE [Interacting]
     Active Substance: BETAHISTINE
     Indication: Product used for unknown indication
  13. BETAHISTINE [Interacting]
     Active Substance: BETAHISTINE
     Dosage: 40 MILLIGRAM DAILY;
  14. BETAHISTINE [Interacting]
     Active Substance: BETAHISTINE
  15. ALBUTEROL [Interacting]
     Active Substance: ALBUTEROL
     Indication: Product used for unknown indication
     Route: 065
  16. ALBUTEROL [Interacting]
     Active Substance: ALBUTEROL
     Route: 065
  17. ISOSORBIDE MONONITRATE [Suspect]
     Active Substance: ISOSORBIDE MONONITRATE
     Indication: Coronary artery disease
     Dosage: 1 DOSAGE FORM, QD (ISOSORBIDE MONONITRATE: 60.0MG ); MODIFIED-RELEASE CAPSULE, HARD
     Route: 048
  18. HYDROCHLOROTHIAZIDE [Interacting]
     Active Substance: HYDROCHLOROTHIAZIDE
     Indication: Product used for unknown indication
     Dosage: 25 MG, QD/1-0-0
  19. METOPROLOL [Interacting]
     Active Substance: METOPROLOL
     Indication: Hypertension
     Dosage: DOSAGE SCHEDULE: 1-0-1
     Route: 065
  20. METOPROLOL [Interacting]
     Active Substance: METOPROLOL
     Indication: Type 2 diabetes mellitus
     Route: 065
  21. METOPROLOL [Interacting]
     Active Substance: METOPROLOL
     Dosage: 50 MG, BID/1-0-1/2
  22. TRAMADOL [Interacting]
     Active Substance: TRAMADOL
     Indication: Pain
     Dosage: 100 MILLIGRAM, AS NEEDED 2 TABLETS
  23. HYDROXYZINE [Suspect]
     Active Substance: HYDROXYZINE HYDROCHLORIDE
     Indication: Product used for unknown indication
     Dosage: 40 MG, QD/1-0-0/25 MG, AD HOC, USUALLY
  24. VORTIOXETINE [Concomitant]
     Active Substance: VORTIOXETINE
     Indication: Product used for unknown indication
     Dosage: 10 MG, QD/0-0-1
  25. TRAMADOL [Suspect]
     Active Substance: TRAMADOL
     Indication: Product used for unknown indication
  26. DONEPEZIL [Suspect]
     Active Substance: DONEPEZIL
     Indication: Product used for unknown indication
  27. DABIGATRAN [Suspect]
     Active Substance: DABIGATRAN
     Indication: Product used for unknown indication
     Dosage: 40 MILLIGRAM DAILY;
  28. CITALOPRAM [Interacting]
     Active Substance: CITALOPRAM
     Indication: Depression
  29. CITALOPRAM [Interacting]
     Active Substance: CITALOPRAM
     Dosage: 1-0-0
     Route: 065
  30. SPIRONOLACTONE [Interacting]
     Active Substance: SPIRONOLACTONE
     Indication: Product used for unknown indication
     Dosage: 100 MG, QD/0-1-0
  31. HYDROXYZINE [Interacting]
     Active Substance: HYDROXYZINE HYDROCHLORIDE
     Indication: Product used for unknown indication
     Route: 065
  32. HYDROXYZINE [Interacting]
     Active Substance: HYDROXYZINE HYDROCHLORIDE
     Route: 065
  33. HYDROXYZINE [Interacting]
     Active Substance: HYDROXYZINE HYDROCHLORIDE
     Dosage: 2 IOU
     Route: 065
  34. POTASSIUM CHLORIDE [Interacting]
     Active Substance: POTASSIUM CHLORIDE
     Indication: Product used for unknown indication
     Dosage: 1 DF EVERY 2 DAYS/391 MG K
  35. ALPRAZOLAM [Interacting]
     Active Substance: ALPRAZOLAM
     Indication: Depression
     Dosage: 2 DF, QD/0,5 MG, AD HOC, USUALLY
  36. OMEPRAZOLE [Suspect]
     Active Substance: OMEPRAZOLE
     Indication: Product used for unknown indication
     Dosage: 20 MG, BID/1-1-0
     Route: 048
  37. RAMIPRIL [Interacting]
     Active Substance: RAMIPRIL
     Indication: Cardiac failure
     Dosage: 5 MG, QD/1-0-0
  38. BENSERAZIDE\LEVODOPA [Suspect]
     Active Substance: BENSERAZIDE\LEVODOPA
     Indication: Product used for unknown indication
  39. ACARBOSE [Concomitant]
     Active Substance: ACARBOSE
     Indication: Hyperglycaemia
     Route: 048
  40. ZOLPIDEM [Suspect]
     Active Substance: ZOLPIDEM TARTRATE
     Indication: Depression
     Dosage: 10 MG, QD/0-0-1
  41. BETAHISTINE HYDROCHLORIDE [Interacting]
     Active Substance: BETAHISTINE HYDROCHLORIDE
     Indication: Dizziness
  42. DEXTROSE\NIKETHAMIDE [Interacting]
     Active Substance: DEXTROSE\NIKETHAMIDE
     Indication: Product used for unknown indication
  43. LEVOTHYROXINE SODIUM [Suspect]
     Active Substance: LEVOTHYROXINE SODIUM
     Indication: Product used for unknown indication
     Dosage: 25 MILLIGRAM DAILY
  44. LAN DI [Concomitant]
     Indication: Hypertension
     Dosage: 1 DOSAGE FORM, QD (AMLODIPINE BESILATE: 50.0MG )
     Route: 048
  45. GLICLAZIDE [Suspect]
     Active Substance: GLICLAZIDE
     Indication: Product used for unknown indication
     Dosage: 60 MG, TID/1-1-1
  46. TRAMADOL HYDROCHLORIDE [Concomitant]
     Active Substance: TRAMADOL HYDROCHLORIDE
     Indication: Product used for unknown indication
  47. DABIGATRAN [Interacting]
     Active Substance: DABIGATRAN
     Indication: Product used for unknown indication
     Dosage: 110 MG, BID/DRUG LIST AT THE ADMISSION
     Route: 050
  48. ALLOPURINOL [Interacting]
     Active Substance: ALLOPURINOL
     Indication: Product used for unknown indication
     Dosage: 100 MG, QD/1-0-0
     Route: 048
  49. ZOLPIDEM [Suspect]
     Active Substance: ZOLPIDEM TARTRATE
     Indication: Depression
     Dosage: 100 MG, QD/0-0-1
  50. CHOLECALCIFEROL [Interacting]
     Active Substance: CHOLECALCIFEROL
     Indication: Product used for unknown indication
  51. ZOLPIDEM [Suspect]
     Active Substance: ZOLPIDEM TARTRATE
     Indication: Depression
     Dosage: 10 MG, 1X PER DAY
  52. ZOLPIDEM [Suspect]
     Active Substance: ZOLPIDEM TARTRATE
     Dosage: 1 DOSAGE FORMS DAILY;
  53. ATORVASTATIN CALCIUM [Suspect]
     Active Substance: ATORVASTATIN CALCIUM
     Indication: Product used for unknown indication
     Dosage: 1 DF, DAILY
  54. ACETAMINOPHEN [Suspect]
     Active Substance: ACETAMINOPHEN
     Indication: Product used for unknown indication
     Dosage: 500 MG, BID/1-0-1
  55. ACETAMINOPHEN [Suspect]
     Active Substance: ACETAMINOPHEN
     Dosage: 500 MG, QD/0-0-1
  56. OMEPRAZOLE [Interacting]
     Active Substance: OMEPRAZOLE
     Indication: Product used for unknown indication
     Dosage: 100 MILLIGRAM, 1-1-0
  57. LEVOTHYROXINE SODIUM [Suspect]
     Active Substance: LEVOTHYROXINE SODIUM
     Indication: Product used for unknown indication
     Dosage: 40 MILLIGRAM DAILY
  58. INSULIN NOS [Concomitant]
     Active Substance: INSULIN NOS
     Indication: Blood glucose abnormal
  59. DENOSUMAB [Suspect]
     Active Substance: DENOSUMAB
     Indication: Product used for unknown indication
  60. TRAMADOL HYDROCHLORIDE [Suspect]
     Active Substance: TRAMADOL HYDROCHLORIDE
     Indication: Product used for unknown indication
     Dosage: 40 MILLIGRAM DAILY;
  61. DEXTROSE\NIKETHAMIDE [Suspect]
     Active Substance: DEXTROSE\NIKETHAMIDE
     Indication: Product used for unknown indication
     Dosage: 40 MILLIGRAM DAILY;
  62. POTASSIUM CHLORIDE [Suspect]
     Active Substance: POTASSIUM CHLORIDE
     Indication: Product used for unknown indication
     Dosage: 2 DOSAGE FORMS DAILY; 1 TABLET (391 K PLUS) EVERY 2 DAYS (1 DOSAGE FORMS,1 IN 2 D)
  63. ISOSORBIDE MONONITRATE [Suspect]
     Active Substance: ISOSORBIDE MONONITRATE
     Indication: Product used for unknown indication
     Dosage: UNK (50 MG, AD HOC, USUALLY,1-2 TABLETS A DAY)
  64. HYDROXYZINE [Concomitant]
     Active Substance: HYDROXYZINE HYDROCHLORIDE
     Indication: Product used for unknown indication
  65. HYDROTALCITE [Concomitant]
     Active Substance: HYDROTALCITE
     Indication: Abdominal pain upper
     Dosage: 1
  66. HYDROXYZINE [Interacting]
     Active Substance: HYDROXYZINE HYDROCHLORIDE
     Indication: Product used for unknown indication
  67. RAMIPRIL [Interacting]
     Active Substance: RAMIPRIL
     Indication: Product used for unknown indication
     Dosage: 100 MILLIGRAM DAILY;
  68. NIKETHAMIDE [Interacting]
     Active Substance: NIKETHAMIDE
     Indication: Product used for unknown indication
  69. TRAMADOL [Suspect]
     Active Substance: TRAMADOL
     Indication: Product used for unknown indication

REACTIONS (49)
  - Drug dependence [Unknown]
  - Neuroglycopenia [Unknown]
  - Dementia [Unknown]
  - Sedation [Recovering/Resolving]
  - Mobility decreased [Recovering/Resolving]
  - Motor dysfunction [Recovering/Resolving]
  - Hiatus hernia [Unknown]
  - Orthostatic hypotension [Unknown]
  - Pruritus [Unknown]
  - Hypotension [Recovering/Resolving]
  - Hypoglycaemia [Recovered/Resolved]
  - Parkinsonism [Unknown]
  - Syncope [Recovering/Resolving]
  - Hyponatraemia [Unknown]
  - Bradykinesia [Unknown]
  - Dizziness [Recovering/Resolving]
  - Hyperkalaemia [Unknown]
  - Urinary retention [Unknown]
  - Osteoporosis [Unknown]
  - Blood potassium increased [Unknown]
  - General physical health deterioration [Unknown]
  - Nausea [Unknown]
  - Dysuria [Unknown]
  - Hyperglycaemia [Unknown]
  - Off label use [Unknown]
  - Atrial fibrillation [Unknown]
  - Blood creatine increased [Unknown]
  - Diabetes mellitus inadequate control [Unknown]
  - Constipation [Unknown]
  - Blood cholesterol decreased [Unknown]
  - Depression [Unknown]
  - Melaena [Unknown]
  - Peripheral circulatory failure [Unknown]
  - Muscle rigidity [Unknown]
  - Gastrointestinal disorder [Unknown]
  - Stupor [Unknown]
  - Blood creatinine increased [Unknown]
  - Hypotonia [Unknown]
  - Cognitive disorder [Unknown]
  - Blood urea increased [Unknown]
  - Gastric polyps [Unknown]
  - Arthralgia [Unknown]
  - Abdominal pain upper [Unknown]
  - Initial insomnia [Unknown]
  - Insomnia [Unknown]
  - Blood pressure decreased [Unknown]
  - Hypertension [Unknown]
  - Atrioventricular block first degree [Recovering/Resolving]
  - Fall [Recovering/Resolving]
